FAERS Safety Report 8319338-0 (Version None)
Quarter: 2012Q2

REPORT INFORMATION
  Report Type: 
  Country: None (occurrence: None)
  Receive Date: 20120427
  Receipt Date: 20090915
  Transmission Date: 20120825
  Serious: No
  Sender: FDA-Public Use
  Company Number: US-TEVA-2009010405

PATIENT
  Sex: Female

DRUGS (5)
  1. CYMBALTA [Concomitant]
  2. NEXIUM [Concomitant]
  3. HYZAAR [Concomitant]
  4. KADIAN [Concomitant]
  5. NUVIGIL [Suspect]
     Indication: SLEEP APNOEA SYNDROME
     Dosage: 150 MILLIGRAM;
     Route: 048

REACTIONS (1)
  - STOMATITIS [None]
